FAERS Safety Report 17467518 (Version 4)
Quarter: 2020Q3

REPORT INFORMATION
  Report Type: Report from Study
  Country: US (occurrence: US)
  Receive Date: 20200227
  Receipt Date: 20200706
  Transmission Date: 20201102
  Serious: Yes (Hospitalization, Other)
  Sender: FDA-Public Use
  Company Number: US-ROCHE-2553017

PATIENT
  Age: 47 Year
  Sex: Male

DRUGS (1)
  1. OCREVUS [Suspect]
     Active Substance: OCRELIZUMAB
     Indication: RELAPSING MULTIPLE SCLEROSIS
     Dosage: ONGOING: YES?DATE OF TREATMENT = 13/AUG/2018, 19/FEB/2019, 26/AUG/2019
     Route: 042
     Dates: start: 20180730

REACTIONS (8)
  - Disorientation [Recovered/Resolved]
  - Brain oedema [Unknown]
  - Meningitis [Recovered/Resolved]
  - Urinary tract infection [Recovered/Resolved]
  - Sepsis [Recovered/Resolved]
  - Gait disturbance [Not Recovered/Not Resolved]
  - Asthenia [Unknown]
  - Amnesia [Unknown]

NARRATIVE: CASE EVENT DATE: 201906
